FAERS Safety Report 19085866 (Version 1)
Quarter: 2021Q2

REPORT INFORMATION
  Report Type: Spontaneous
  Country: LY (occurrence: LY)
  Receive Date: 20210402
  Receipt Date: 20210402
  Transmission Date: 20210717
  Serious: Yes (Hospitalization)
  Sender: FDA-Public Use
  Company Number: LY-ABBVIE-21K-097-3835139-00

PATIENT
  Age: 20 Month
  Sex: Male
  Weight: 14 kg

DRUGS (1)
  1. DEPAKOTE [Suspect]
     Active Substance: DIVALPROEX SODIUM
     Indication: SEIZURE PROPHYLAXIS
     Route: 065

REACTIONS (3)
  - Toxicity to various agents [Recovered/Resolved]
  - Hyperammonaemic encephalopathy [Recovered/Resolved]
  - Accidental exposure to product [Recovered/Resolved]
